FAERS Safety Report 9213571 (Version 1)
Quarter: 2013Q2

REPORT INFORMATION
  Report Type: Report from Study
  Country: JP (occurrence: JP)
  Receive Date: 20130405
  Receipt Date: 20130405
  Transmission Date: 20140414
  Serious: Yes (Hospitalization)
  Sender: FDA-Public Use
  Company Number: JP-NOVOPROD-373571

PATIENT
  Age: 41 Year
  Sex: Male
  Weight: 65 kg

DRUGS (7)
  1. LIRAGLUTIDE FLEXPEN [Suspect]
     Indication: TYPE 2 DIABETES MELLITUS
     Dosage: 0.3 MG, QD (MORNING)
     Route: 058
     Dates: start: 20111221
  2. LIRAGLUTIDE FLEXPEN [Suspect]
     Dosage: 0.6 MG, QD
     Route: 058
     Dates: start: 20111228
  3. DORAL [Concomitant]
     Route: 048
  4. PAXIL                              /00830802/ [Concomitant]
     Route: 048
  5. CONSTAN                            /00595201/ [Concomitant]
     Route: 048
  6. ANAFRANIL [Concomitant]
     Route: 048
  7. LYRICA [Concomitant]
     Route: 048
     Dates: end: 20120110

REACTIONS (1)
  - Depression [Recovering/Resolving]
